FAERS Safety Report 5237911-3 (Version None)
Quarter: 2007Q1

REPORT INFORMATION
  Report Type: 
  Country: None (occurrence: None)
  Receive Date: 20070214
  Receipt Date: 20070202
  Transmission Date: 20070707
  Serious: Yes (Other)
  Sender: FDA-Public Use
  Company Number: US-GILEAD-2006-0010010

PATIENT
  Sex: Female

DRUGS (4)
  1. EMTRIVA [Suspect]
     Route: 064
     Dates: end: 20050727
  2. VIREAD [Suspect]
     Route: 064
     Dates: end: 20050727
  3. RETROVIR [Concomitant]
     Route: 064
     Dates: start: 20060217, end: 20060218
  4. SUSTIVA [Concomitant]
     Indication: HIV INFECTION
     Route: 064
     Dates: end: 20050727

REACTIONS (1)
  - NO ADVERSE EFFECT [None]
